FAERS Safety Report 10070959 (Version 4)
Quarter: 2014Q2

REPORT INFORMATION
  Report Type: Spontaneous
  Country: US (occurrence: US)
  Receive Date: 20140410
  Receipt Date: 20140611
  Transmission Date: 20141212
  Serious: Yes (Other)
  Sender: FDA-Public Use
  Company Number: US-GLAXOSMITHKLINE-A1068071A

PATIENT
  Age: 77 Year
  Sex: Female

DRUGS (11)
  1. LOVAZA [Suspect]
     Indication: BLOOD TRIGLYCERIDES INCREASED
     Dosage: 2CAP TWICE PER DAY
     Route: 048
     Dates: start: 2004
  2. WELCHOL [Concomitant]
  3. UNKNOWN [Concomitant]
  4. METOPROLOL TARTRATE [Concomitant]
  5. VALSARTAN / HYDROCHLOROTHIAZIDE [Concomitant]
  6. SYNTHROID [Concomitant]
  7. VITAMIN D [Concomitant]
  8. CALCITRIOL [Concomitant]
  9. SINGULAIR [Concomitant]
  10. XARELTO [Concomitant]
  11. ADVAIR [Concomitant]

REACTIONS (4)
  - Atrial fibrillation [Not Recovered/Not Resolved]
  - Blood cholesterol increased [Not Recovered/Not Resolved]
  - Eructation [Not Recovered/Not Resolved]
  - Product quality issue [Unknown]
